FAERS Safety Report 13538793 (Version 1)
Quarter: 2017Q2

REPORT INFORMATION
  Report Type: Spontaneous
  Country: US (occurrence: US)
  Receive Date: 20170511
  Receipt Date: 20170511
  Transmission Date: 20170830
  Serious: Yes (Disabling)
  Sender: FDA-Public Use
  Company Number: None

PATIENT
  Age: 39 Year
  Sex: Male
  Weight: 106.2 kg

DRUGS (1)
  1. LEVOFLOXACIN. [Suspect]
     Active Substance: LEVOFLOXACIN
     Indication: INFECTION PROPHYLAXIS
     Dosage: ?          QUANTITY:10 TABLET(S);?
     Route: 048
     Dates: start: 20130807, end: 20130808

REACTIONS (16)
  - Arthropathy [None]
  - Gastrointestinal disorder [None]
  - Pain in extremity [None]
  - Panic attack [None]
  - Chest pain [None]
  - Palpitations [None]
  - Ageusia [None]
  - Vitreous floaters [None]
  - Arthralgia [None]
  - Burning sensation [None]
  - Headache [None]
  - Insomnia [None]
  - Screaming [None]
  - Crying [None]
  - Muscular weakness [None]
  - Pain [None]

NARRATIVE: CASE EVENT DATE: 20130807
